FAERS Safety Report 5693992-4 (Version None)
Quarter: 2008Q2

REPORT INFORMATION
  Report Type: 
  Country: None (occurrence: None)
  Receive Date: 20080403
  Receipt Date: 20080122
  Transmission Date: 20081010
  Serious: Yes (Other)
  Sender: FDA-Public Use
  Company Number: US-PFIZER INC-2007096453

PATIENT
  Sex: Female
  Weight: 52.2 kg

DRUGS (7)
  1. LYRICA [Suspect]
     Indication: NEURALGIA
     Route: 048
  2. LYRICA [Suspect]
     Indication: FACIAL NEURALGIA
  3. NEURONTIN [Suspect]
     Indication: FACIAL NEURALGIA
     Dates: start: 20070101, end: 20070101
  4. ELAVIL [Suspect]
     Indication: FACIAL NEURALGIA
     Dates: start: 20070101, end: 20070101
  5. PROVIGIL [Concomitant]
  6. WELLBUTRIN [Concomitant]
  7. VICODIN [Concomitant]

REACTIONS (9)
  - ADVERSE DRUG REACTION [None]
  - ALOPECIA [None]
  - AMNESIA [None]
  - CONSTIPATION [None]
  - DISTURBANCE IN ATTENTION [None]
  - DRUG INEFFECTIVE [None]
  - FATIGUE [None]
  - INCONTINENCE [None]
  - SOMNOLENCE [None]
